FAERS Safety Report 4471963-3 (Version None)
Quarter: 2004Q4

REPORT INFORMATION
  Report Type: 
  Country: None (occurrence: None)
  Receive Date: 20041007
  Receipt Date: 20040921
  Transmission Date: 20050328
  Serious: Yes (Death, Hospitalization)
  Sender: FDA-Public Use
  Company Number: 2004233073JP

PATIENT
  Age: 69 Year
  Sex: Male
  Weight: 55 kg

DRUGS (4)
  1. FAMORUBICIN       (EPIRUBICIN HYDROCHLORIDE) [Suspect]
     Indication: GASTRIC CANCER
     Dosage: 20 MG, WEEKLY, INTRA-ARTERIAL
     Route: 013
     Dates: start: 20021129, end: 20030521
  2. FLUOROURACIL [Suspect]
     Indication: GASTRIC CANCER
     Dosage: 250 MG, WEEKLY, INTRA-ARTERIAL
     Route: 013
     Dates: start: 20021129, end: 20030521
  3. TS-1(TEGAFUR, GIMERACIL, OTERACIL POTASSIUM) [Suspect]
     Indication: GASTRIC CANCER
     Dosage: 20 MG QID, CYCLE 21, ORAL
     Route: 048
     Dates: start: 20030603, end: 20030811
  4. MITOMYCIN-C BULK POWDER [Concomitant]

REACTIONS (6)
  - APHAGIA [None]
  - CHOLANGITIS SCLEROSING [None]
  - HEPATIC FAILURE [None]
  - METASTASES TO LUNG [None]
  - OEDEMA PERIPHERAL [None]
  - POST PROCEDURAL COMPLICATION [None]
